FAERS Safety Report 15105432 (Version 1)
Quarter: 2018Q3

REPORT INFORMATION
  Report Type: Spontaneous
  Country: FR (occurrence: FR)
  Receive Date: 20180704
  Receipt Date: 20180704
  Transmission Date: 20181010
  Serious: Yes (Hospitalization)
  Sender: FDA-Public Use
  Company Number: FR-009507513-1807FRA000709

PATIENT
  Age: 1 Day
  Sex: Female
  Weight: 1.73 kg

DRUGS (7)
  1. UTROGESTAN [Concomitant]
     Active Substance: PROGESTERONE
     Dosage: UNK
     Route: 064
  2. PROPYLEX 50 [Concomitant]
     Dosage: UNK
     Route: 064
  3. LEVOTHYROX [Concomitant]
     Active Substance: LEVOTHYROXINE
     Dosage: UNK
     Route: 064
  4. LOXEN 50 LP [Concomitant]
     Dosage: UNK
     Route: 064
  5. CELESTENE 4MG/1ML [Suspect]
     Active Substance: BETAMETHASONE
     Dosage: UNK
     Route: 064
  6. LOXEN 20 [Concomitant]
     Dosage: UNK
     Route: 064
  7. ALDOMET [Concomitant]
     Active Substance: METHYLDOPA
     Dosage: UNK
     Route: 064

REACTIONS (3)
  - Premature baby [Unknown]
  - Foetal exposure during pregnancy [Recovered/Resolved]
  - Low birth weight baby [Unknown]

NARRATIVE: CASE EVENT DATE: 20180616
